FAERS Safety Report 4523666-4 (Version None)
Quarter: 2005Q1

REPORT INFORMATION
  Report Type: 
  Country: None (occurrence: None)
  Receive Date: 20041101
  Receipt Date: 20031023
  Transmission Date: 20050727
  Serious: Yes (Disabling, Other)
  Sender: FDA-Public Use
  Company Number: HQWYE541627OCT03

PATIENT
  Age: 60 Year
  Sex: Female
  Weight: 56.75 kg

DRUGS (2)
  1. PREMARIN [Suspect]
     Dosage: DOSE, ORAL
     Route: 048
  2. PROVERA [Suspect]
     Dates: end: 19970101

REACTIONS (4)
  - ASTHENIA [None]
  - DEPRESSION [None]
  - UNEVALUABLE EVENT [None]
  - WEIGHT DECREASED [None]
